FAERS Safety Report 9761308 (Version 1)
Quarter: 2013Q2

REPORT INFORMATION
  Report Type: Spontaneous
  Country: US (occurrence: None)
  Receive Date: 20130628
  Receipt Date: 20130628
  Transmission Date: 20140414
  Serious: Yes (Other)
  Sender: FDA-Public Use
  Company Number: 1713747-2013-99914

PATIENT
  Age: 38 Year
  Sex: Male
  Weight: 62.9 kg

DRUGS (1)
  1. SALINE [Suspect]

REACTIONS (1)
  - Therapy change [None]
